FAERS Safety Report 13171751 (Version 1)
Quarter: 2017Q1

REPORT INFORMATION
  Report Type: Spontaneous
  Country: US (occurrence: US)
  Receive Date: 20170131
  Receipt Date: 20170131
  Transmission Date: 20170428
  Serious: No
  Sender: FDA-Public Use
  Company Number: US-ABBVIE-16K-163-1671771-00

PATIENT

DRUGS (6)
  1. PREDNISONE. [Suspect]
     Active Substance: PREDNISONE
     Indication: INFLAMMATION
     Route: 065
  2. HUMIRA [Suspect]
     Active Substance: ADALIMUMAB
     Indication: CROHN^S DISEASE
     Route: 058
  3. PENTASA [Suspect]
     Active Substance: MESALAMINE
     Indication: INFLAMMATION
     Route: 065
  4. PREDNISONE. [Suspect]
     Active Substance: PREDNISONE
     Dosage: HIGH DOSE
     Route: 065
     Dates: start: 201601
  5. PREDNISONE. [Suspect]
     Active Substance: PREDNISONE
     Dosage: DOSE REDUCED
     Route: 065
  6. PENTASA [Suspect]
     Active Substance: MESALAMINE
     Route: 065

REACTIONS (5)
  - Inflammation [Unknown]
  - Contusion [Unknown]
  - Weight increased [Unknown]
  - Oedema peripheral [Unknown]
  - Drug ineffective [Unknown]
